FAERS Safety Report 8214243-2 (Version None)
Quarter: 2012Q1

REPORT INFORMATION
  Report Type: 
  Country: None (occurrence: None)
  Receive Date: 20120316
  Receipt Date: 20120306
  Transmission Date: 20120608
  Serious: Yes (Hospitalization)
  Sender: FDA-Public Use
  Company Number: CA-JNJFOC-20120303817

PATIENT
  Sex: Female
  Weight: 95.1 kg

DRUGS (5)
  1. EFFEXOR [Concomitant]
     Route: 065
  2. REMICADE [Suspect]
     Indication: COLITIS ULCERATIVE
     Route: 042
     Dates: start: 20090729
  3. RHOVANE [Concomitant]
     Route: 065
  4. SULFASALAZINE [Concomitant]
     Route: 065
  5. IMURAN [Concomitant]
     Route: 065

REACTIONS (1)
  - SURGERY [None]
